FAERS Safety Report 25751664 (Version 1)
Quarter: 2025Q3

REPORT INFORMATION
  Report Type: Spontaneous
  Country: AU (occurrence: AU)
  Receive Date: 20250902
  Receipt Date: 20250902
  Transmission Date: 20251021
  Serious: Yes (Other)
  Sender: AMGEN
  Company Number: AU-AMGEN-AUSSP2025172346

PATIENT

DRUGS (1)
  1. BEVACIZUMAB [Suspect]
     Active Substance: BEVACIZUMAB
     Indication: Diabetic retinal oedema
     Route: 065

REACTIONS (5)
  - Vitreous haemorrhage [Unknown]
  - Cataract [Unknown]
  - Intraocular pressure increased [Unknown]
  - Maternal exposure during pregnancy [Unknown]
  - Off label use [Unknown]
